FAERS Safety Report 8356494 (Version 6)
Quarter: 2012Q4

REPORT INFORMATION
  Report Type: 
  Country: JP (occurrence: JP)
  Receive Date: 20120126
  Receipt Date: 20121005
  Transmission Date: 20130627
  Serious: Yes (Life-Threatening, Hospitalization, Other)
  Sender: FDA-Public Use
  Company Number: JP-B.I. PHARMACEUTICALS,INC./RIDGEFIELD-2012-BP-01445NB

PATIENT
  Age: 78 Year
  Sex: Male
  Weight: 49.6 kg

DRUGS (6)
  1. PRAZAXA [Suspect]
     Indication: CEREBROVASCULAR ACCIDENT PROPHYLAXIS
     Dosage: 220 mg
     Route: 048
     Dates: start: 20111128, end: 20120122
  2. FINIBAX [Suspect]
     Indication: PULMONARY ALVEOLAR HAEMORRHAGE
     Route: 065
     Dates: end: 20120206
  3. HERBESSER R [Concomitant]
     Dosage: 200 mg
     Route: 048
     Dates: start: 20111124
  4. LENDEM D [Concomitant]
     Indication: INSOMNIA
     Dosage: 0.25 mg
     Route: 048
     Dates: start: 20111209, end: 20120122
  5. PARIET [Concomitant]
     Indication: GASTRITIS
     Dosage: 10 mg
     Route: 048
     Dates: start: 20111222, end: 20120122
  6. SUNRYTHM [Concomitant]
     Route: 065
     Dates: start: 20111129

REACTIONS (9)
  - Pneumothorax [Unknown]
  - Pulmonary alveolar haemorrhage [Recovered/Resolved]
  - Nasopharyngitis [Recovered/Resolved]
  - Gastrointestinal haemorrhage [Recovered/Resolved]
  - Gastric mucosal lesion [Recovered/Resolved]
  - Hepatitis C [Unknown]
  - Hepatic enzyme increased [Recovered/Resolved]
  - Hyperbilirubinaemia [Recovered/Resolved]
  - Jaundice [Recovered/Resolved]
